FAERS Safety Report 6817135 (Version 3)
Quarter: 2012Q4

REPORT INFORMATION
  Report Type: 
  Country: US (occurrence: US)
  Receive Date: 20081120
  Receipt Date: 20121119
  Transmission Date: 20130627
  Serious: Yes (Life-Threatening, Hospitalization, Other)
  Sender: FDA-Public Use
  Company Number: US-ELI_LILLY_AND_COMPANY-US200811002659

PATIENT
  Age: 69 Year
  Sex: Female
  Weight: 90.25 kg

DRUGS (10)
  1. BYETTA [Suspect]
     Indication: TYPE 2 DIABETES MELLITUS
     Dosage: 5 ug, 2/D
     Route: 058
     Dates: start: 2006, end: 200701
  2. BYETTA [Suspect]
     Dosage: 10 ug, 2/D
     Route: 058
     Dates: start: 200701, end: 200810
  3. GLIPIZIDE [Concomitant]
  4. METFORMIN [Concomitant]
     Dosage: UNK, 2/D
  5. LANTUS [Concomitant]
  6. LISINOPRIL AND HYDROCHLOROTHIAZIDE [Concomitant]
  7. METOPROLOL [Concomitant]
  8. BABY ASPIRIN [Concomitant]
  9. NORVASC [Concomitant]
  10. CENTRUM                            /00554501/ [Concomitant]

REACTIONS (7)
  - Acute respiratory failure [Unknown]
  - Pancreatitis [Recovering/Resolving]
  - Pleural effusion [Unknown]
  - Cholelithiasis [Recovered/Resolved]
  - Pancreatic pseudocyst [Unknown]
  - Pancreatitis acute [Unknown]
  - Diarrhoea [Recovering/Resolving]
